FAERS Safety Report 7418168-1 (Version None)
Quarter: 2011Q2

REPORT INFORMATION
  Report Type: 
  Country: None (occurrence: None)
  Receive Date: 20110415
  Receipt Date: 20110405
  Transmission Date: 20111010
  Serious: Yes (Other)
  Sender: FDA-Public Use
  Company Number: US-SHIRE-SPV1-2011-00301

PATIENT

DRUGS (5)
  1. RISPERDAL [Suspect]
     Dosage: UNK
     Route: 048
     Dates: start: 20110101, end: 20110101
  2. TENEX [Suspect]
     Dosage: UNK
     Route: 048
     Dates: start: 20110101, end: 20110101
  3. REMERON [Suspect]
     Dosage: UNK
     Route: 048
     Dates: start: 20110101, end: 20110101
  4. INTUNIV [Suspect]
     Dosage: 3 MG, UNK
     Route: 048
     Dates: start: 20110101, end: 20110101
  5. CELEXA [Suspect]
     Dosage: UNK
     Route: 048
     Dates: start: 20110101, end: 20110101

REACTIONS (3)
  - PHYSICAL ASSAULT [None]
  - MALAISE [None]
  - ACCIDENTAL EXPOSURE [None]
